FAERS Safety Report 7293333-5 (Version None)
Quarter: 2011Q1

REPORT INFORMATION
  Report Type: 
  Country: None (occurrence: None)
  Receive Date: 20110210
  Receipt Date: 20110210
  Transmission Date: 20110831
  Serious: Yes (Other)
  Sender: FDA-Public Use
  Company Number: None

PATIENT
  Age: 21 Year
  Sex: Male
  Weight: 88.4514 kg

DRUGS (1)
  1. TOPIRAMATE 25MG SUN [Suspect]
     Indication: MIGRAINE PROPHYLAXIS
     Dosage: 100MG TWICE A DAY PO
     Route: 048
     Dates: start: 20110113, end: 20110209

REACTIONS (4)
  - ARTHRALGIA [None]
  - INSOMNIA [None]
  - QUALITY OF LIFE DECREASED [None]
  - ACTIVITIES OF DAILY LIVING IMPAIRED [None]
